FAERS Safety Report 15397582 (Version 6)
Quarter: 2020Q2

REPORT INFORMATION
  Report Type: Report from Study
  Country: ES (occurrence: ES)
  Receive Date: 20180918
  Receipt Date: 20200424
  Transmission Date: 20200713
  Serious: Yes (Life-Threatening, Hospitalization)
  Sender: FDA-Public Use
  Company Number: ES-ROCHE-2184640

PATIENT
  Age: 60 Year
  Sex: Male
  Weight: 91.2 kg

DRUGS (17)
  1. RO6874281 (FAP IL2V MAB) [Suspect]
     Active Substance: SIMLUKAFUSP ALFA
     Indication: NEOPLASM
     Dosage: DATE OF MOST RECENT DOSE OF RO 6874281 (FAP IL2V MAB) (10 MG) PRIOR TO AE ONSET 10/SEP/2018 AT 13.36
     Route: 042
     Dates: start: 20180730
  2. ATEZOLIZUMAB. [Suspect]
     Active Substance: ATEZOLIZUMAB
     Indication: NEOPLASM
     Dosage: DATE OF MOST RECENT DOSE OF ATEZOLIZUMAB (840 MG) PRIOR TO SAE ONSET 10/SEP/2018 AT 12.04
     Route: 042
     Dates: start: 20180730
  3. INDOMETACIN [Concomitant]
     Active Substance: INDOMETHACIN
     Route: 065
     Dates: start: 20180827, end: 20180827
  4. PARACETAMOL [Concomitant]
     Active Substance: ACETAMINOPHEN
     Indication: PREMEDICATION
     Route: 065
     Dates: start: 20180730, end: 20180730
  5. RANITIDINE. [Concomitant]
     Active Substance: RANITIDINE
     Route: 065
     Dates: start: 20180827, end: 20180827
  6. RANITIDINE. [Concomitant]
     Active Substance: RANITIDINE
     Route: 065
     Dates: start: 20180910, end: 20180910
  7. RO6874281 (FAP IL2V MAB) [Suspect]
     Active Substance: SIMLUKAFUSP ALFA
     Dosage: DATE OF MOST RECENT DOSE OF RO6874281 (10 MG) PRIOR TO SAE ONSET: 10/SEP/2018
     Route: 042
  8. MASTICAL [Concomitant]
     Active Substance: CALCIUM CARBONATE
     Indication: PROPHYLAXIS
  9. INDOMETACIN [Concomitant]
     Active Substance: INDOMETHACIN
     Route: 065
     Dates: start: 20180910, end: 20180910
  10. EUTIROX [Concomitant]
     Active Substance: LEVOTHYROXINE SODIUM
     Indication: HYPOTHYROIDISM
  11. OMEPRAZOL [OMEPRAZOLE] [Concomitant]
     Active Substance: OMEPRAZOLE
     Indication: PROPHYLAXIS
  12. INDOMETACIN [Concomitant]
     Active Substance: INDOMETHACIN
     Indication: PREMEDICATION
     Route: 065
     Dates: start: 20180730, end: 20180730
  13. INDOMETACIN [Concomitant]
     Active Substance: INDOMETHACIN
     Route: 065
     Dates: start: 20180813
  14. RANITIDINE. [Concomitant]
     Active Substance: RANITIDINE
     Route: 065
     Dates: start: 20180813, end: 20180813
  15. RANITIDINE. [Concomitant]
     Active Substance: RANITIDINE
     Route: 065
     Dates: start: 20180820, end: 20180820
  16. INDOMETACIN [Concomitant]
     Active Substance: INDOMETHACIN
     Route: 065
     Dates: start: 20180820, end: 20180820
  17. RANITIDINE. [Concomitant]
     Active Substance: RANITIDINE
     Indication: PREMEDICATION
     Route: 065
     Dates: start: 20180730, end: 20180730

REACTIONS (1)
  - Anaphylactic reaction [Recovered/Resolved]

NARRATIVE: CASE EVENT DATE: 20180912
